FAERS Safety Report 25152461 (Version 2)
Quarter: 2025Q2

REPORT INFORMATION
  Report Type: Report from Study
  Country: US (occurrence: US)
  Receive Date: 20250402
  Receipt Date: 20250506
  Transmission Date: 20250716
  Serious: Yes (Other)
  Sender: ABBVIE
  Company Number: US-ABBVIE-6199542

PATIENT
  Sex: Female

DRUGS (2)
  1. SKYRIZI [Suspect]
     Active Substance: RISANKIZUMAB-RZAA
     Indication: Psoriasis
     Route: 058
     Dates: start: 20240906
  2. SKYRIZI [Suspect]
     Active Substance: RISANKIZUMAB-RZAA
     Route: 058
     Dates: start: 20241021

REACTIONS (5)
  - Carpal tunnel syndrome [Recovering/Resolving]
  - Cubital tunnel syndrome [Recovering/Resolving]
  - Pain [Recovering/Resolving]
  - Trigger finger [Recovering/Resolving]
  - Pruritus [Recovering/Resolving]
